FAERS Safety Report 6594973-9 (Version None)
Quarter: 2010Q1

REPORT INFORMATION
  Report Type: 
  Country: None (occurrence: None)
  Receive Date: 20100222
  Receipt Date: 20100208
  Transmission Date: 20100710
  Serious: Yes (Other)
  Sender: FDA-Public Use
  Company Number: US-ELI_LILLY_AND_COMPANY-US201002003598

PATIENT
  Age: 64 Year
  Sex: Male

DRUGS (2)
  1. CIALIS [Suspect]
     Indication: ERECTILE DYSFUNCTION
     Dosage: 20 MG, AS NEEDED
     Dates: start: 20060101, end: 20100105
  2. LISINOPRIL [Concomitant]
     Dosage: UNK, UNKNOWN

REACTIONS (6)
  - ASTHENIA [None]
  - PAIN [None]
  - PARALYSIS [None]
  - PERIPHERAL VASCULAR DISORDER [None]
  - PROSTATE CANCER [None]
  - THERAPEUTIC RESPONSE DECREASED [None]
